FAERS Safety Report 5533456-1 (Version None)
Quarter: 2007Q4

REPORT INFORMATION
  Report Type: 
  Country: None (occurrence: None)
  Receive Date: 20071128
  Receipt Date: 20071114
  Transmission Date: 20080405
  Serious: Yes (Other)
  Sender: FDA-Public Use
  Company Number: 164246USA

PATIENT
  Age: 53 Year
  Sex: Male

DRUGS (7)
  1. ETOPOSIDE [Suspect]
     Indication: ACUTE MYELOID LEUKAEMIA
  2. CYTARABINE [Suspect]
     Indication: ACUTE MYELOID LEUKAEMIA
  3. CYCLOPHOSPHAMIDE [Suspect]
     Indication: ACUTE MYELOID LEUKAEMIA
  4. METHOTREXATE [Suspect]
     Indication: ACUTE MYELOID LEUKAEMIA
  5. IDARUBICIN HCL [Suspect]
     Indication: ACUTE MYELOID LEUKAEMIA
  6. CYCLOSPORINE [Suspect]
  7. CORTICOSTEROIDS [Suspect]

REACTIONS (3)
  - ACANTHOSIS [None]
  - LIP AND/OR ORAL CAVITY CANCER [None]
  - PARAKERATOSIS [None]
